FAERS Safety Report 6014572-7 (Version None)
Quarter: 2008Q4

REPORT INFORMATION
  Report Type: 
  Country: None (occurrence: None)
  Receive Date: 20081219
  Receipt Date: 20080825
  Transmission Date: 20090506
  Serious: No
  Sender: FDA-Public Use
  Company Number: A0744129A

PATIENT
  Age: 59 Year
  Sex: Male

DRUGS (2)
  1. AVODART [Suspect]
     Indication: BENIGN PROSTATIC HYPERPLASIA
     Dosage: 1CAP PER DAY
     Route: 048
     Dates: start: 20080401
  2. CONCURRENT MEDICATIONS [Concomitant]

REACTIONS (3)
  - PROSTATOMEGALY [None]
  - SEMEN VOLUME DECREASED [None]
  - URINARY INCONTINENCE [None]
